FAERS Safety Report 8525004-9 (Version None)
Quarter: 2012Q3

REPORT INFORMATION
  Report Type: 
  Country: None (occurrence: None)
  Receive Date: 20120720
  Receipt Date: 20120711
  Transmission Date: 20120928
  Serious: Yes (Other)
  Sender: FDA-Public Use
  Company Number: US-ASTRAZENECA-2012SE47991

PATIENT
  Age: 822 Month
  Sex: Female

DRUGS (6)
  1. VITAMIN TAB [Concomitant]
     Dates: end: 20120401
  2. CRESTOR [Suspect]
     Indication: BLOOD CHOLESTEROL INCREASED
     Route: 048
     Dates: start: 20090101, end: 20120401
  3. CRESTOR [Suspect]
     Route: 048
     Dates: start: 20120501, end: 20120601
  4. STARLIX [Concomitant]
     Dates: end: 20120401
  5. PRAVASTATIN [Concomitant]
     Dosage: PRIOR TO CRESTOR
  6. SYNTHROID [Concomitant]
     Dates: end: 20120401

REACTIONS (2)
  - HEPATITIS [None]
  - URINARY TRACT INFECTION [None]
